FAERS Safety Report 18097117 (Version 1)
Quarter: 2020Q3

REPORT INFORMATION
  Report Type: Spontaneous
  Country: US (occurrence: US)
  Receive Date: 20200730
  Receipt Date: 20200730
  Transmission Date: 20201103
  Serious: Yes (Hospitalization)
  Sender: FDA-Public Use
  Company Number: None

PATIENT
  Age: 78 Year
  Sex: Female

DRUGS (10)
  1. FUROSEMIDE. [Concomitant]
     Active Substance: FUROSEMIDE
  2. GABAPENTIN. [Concomitant]
     Active Substance: GABAPENTIN
  3. SYNTHROID [Concomitant]
     Active Substance: LEVOTHYROXINE SODIUM
  4. FOLIC ACID. [Concomitant]
     Active Substance: FOLIC ACID
  5. HUMIRA [Suspect]
     Active Substance: ADALIMUMAB
     Indication: RHEUMATOID ARTHRITIS
     Dosage: ?          OTHER FREQUENCY:EVERY OTHER WEEK;?
     Route: 058
     Dates: start: 20190315
  6. HYDROCO/APAP [Concomitant]
     Active Substance: ACETAMINOPHEN\HYDROCODONE
  7. NITROFUR MAC [Concomitant]
     Active Substance: NITROFURANTOIN
  8. FLUCONAZOLE. [Concomitant]
     Active Substance: FLUCONAZOLE
  9. METHOTREXATE. [Concomitant]
     Active Substance: METHOTREXATE
  10. POT CL MICRO [Concomitant]

REACTIONS (3)
  - Atrial fibrillation [None]
  - Urinary tract infection [None]
  - Therapy interrupted [None]

NARRATIVE: CASE EVENT DATE: 20200204
